FAERS Safety Report 12182583 (Version 1)
Quarter: 2016Q1

REPORT INFORMATION
  Report Type: Spontaneous
  Country: US (occurrence: US)
  Receive Date: 20160316
  Receipt Date: 20160316
  Transmission Date: 20160526
  Serious: Yes (Other)
  Sender: FDA-Public Use
  Company Number: US-AMGEN-USASP2016030136

PATIENT
  Age: 65 Year
  Sex: Female

DRUGS (2)
  1. PROLIA [Suspect]
     Active Substance: DENOSUMAB
     Indication: OSTEOPOROSIS POSTMENOPAUSAL
     Dosage: UNK
     Route: 065
  2. ESTROGEN [Suspect]
     Active Substance: ESTRONE\SUS SCROFA OVARY
     Indication: PRODUCT USED FOR UNKNOWN INDICATION
     Dosage: UNK
     Route: 065

REACTIONS (11)
  - Lung neoplasm malignant [Unknown]
  - Gait disturbance [Unknown]
  - Chronic obstructive pulmonary disease [Unknown]
  - Bone pain [Unknown]
  - Arthralgia [Unknown]
  - Myocardial infarction [Unknown]
  - Malaise [Unknown]
  - Feeling abnormal [Unknown]
  - Mastectomy [Unknown]
  - Back pain [Unknown]
  - Pain in extremity [Unknown]

NARRATIVE: CASE EVENT DATE: 2007
